FAERS Safety Report 8338553-3 (Version None)
Quarter: 2012Q2

REPORT INFORMATION
  Report Type: 
  Country: None (occurrence: None)
  Receive Date: 20120504
  Receipt Date: 20120503
  Transmission Date: 20120825
  Serious: Yes (Other)
  Sender: FDA-Public Use
  Company Number: IL-PFIZER INC-2012108561

PATIENT
  Age: 61 Year
  Sex: Male

DRUGS (3)
  1. CYMBALTA [Concomitant]
     Dosage: UNK
  2. LYRICA [Suspect]
     Indication: ARTHRALGIA
  3. GLUCOPHAGE [Concomitant]
     Indication: DIABETES MELLITUS

REACTIONS (6)
  - FEELING ABNORMAL [None]
  - ACTIVITIES OF DAILY LIVING IMPAIRED [None]
  - VERTIGO [None]
  - ASTHENIA [None]
  - SOMNOLENCE [None]
  - DIZZINESS [None]
